FAERS Safety Report 8487648-2 (Version None)
Quarter: 2012Q3

REPORT INFORMATION
  Report Type: 
  Country: None (occurrence: None)
  Receive Date: 20120705
  Receipt Date: 20120625
  Transmission Date: 20120928
  Serious: Yes (Hospitalization)
  Sender: FDA-Public Use
  Company Number: US-BAYER-2011-075740

PATIENT
  Age: 27 Year
  Sex: Female

DRUGS (6)
  1. YAZ [Suspect]
     Indication: POLYCYSTIC OVARIES
  2. CLARITIN [Concomitant]
     Dosage: 10 MG, PRN
     Route: 048
  3. ARIXTRA [Concomitant]
     Dosage: 7.5 MG SUBCUTANEOUS DAILY
     Route: 058
  4. YAZ [Suspect]
     Indication: DYSMENORRHOEA
     Dosage: UNK
  5. LEXAPRO [Concomitant]
     Dosage: 10 MG VERSUS 20 MG ONCE DAILY
     Route: 048
  6. YASMIN [Suspect]
     Dosage: UNK

REACTIONS (1)
  - PULMONARY EMBOLISM [None]
